FAERS Safety Report 8835706 (Version 1)
Quarter: 2012Q4

REPORT INFORMATION
  Report Type: 
  Country: US (occurrence: US)
  Receive Date: 20121011
  Receipt Date: 20121011
  Transmission Date: 20130627
  Serious: Yes (Other)
  Sender: FDA-Public Use
  Company Number: PHEH2012US019496

PATIENT
  Sex: Male

DRUGS (2)
  1. GLEEVEC [Suspect]
     Dosage: 400 mg, QD
     Route: 048
  2. GLEEVEC [Suspect]
     Dosage: 400 mg, three times a week
     Route: 048

REACTIONS (4)
  - Arterial occlusive disease [Unknown]
  - Pain in extremity [Unknown]
  - Vomiting [Unknown]
  - Nausea [Unknown]
